FAERS Safety Report 7239540-9 (Version None)
Quarter: 2011Q1

REPORT INFORMATION
  Report Type: 
  Country: None (occurrence: None)
  Receive Date: 20110121
  Receipt Date: 20100721
  Transmission Date: 20110831
  Serious: No
  Sender: FDA-Public Use
  Company Number: US-PFIZER INC-2010063618

PATIENT
  Sex: Female

DRUGS (1)
  1. PROCARDIA [Suspect]
     Dosage: 30 MG, 3X/DAY
     Route: 048

REACTIONS (1)
  - DRUG EFFECT DECREASED [None]
